FAERS Safety Report 8035869-5 (Version None)
Quarter: 2012Q1

REPORT INFORMATION
  Report Type: 
  Country: None (occurrence: None)
  Receive Date: 20120111
  Receipt Date: 20120111
  Transmission Date: 20120608
  Serious: Yes (Life-Threatening, Hospitalization)
  Sender: FDA-Public Use
  Company Number: None

PATIENT
  Age: 63 Year
  Sex: Male
  Weight: 90.718 kg

DRUGS (9)
  1. DIOVAN [Concomitant]
  2. VERAPAMIL EXTENDED-RELEASE [Concomitant]
  3. ASPIRIN [Concomitant]
  4. CLOBETASOL PROPIONATE USP, CREAM, 0.05% [Concomitant]
  5. CLOBETASOL PROPIONATE USP, TOPICAL SOLUTION, 0.05% [Concomitant]
  6. CLOBEX [Concomitant]
  7. FENOFIBRATE [Suspect]
     Indication: BLOOD CHOLESTEROL
     Dosage: 1340MG
     Route: 048
     Dates: start: 20100101, end: 20110101
  8. PROTOPIC [Concomitant]
  9. BENFOTIAMINE [Concomitant]

REACTIONS (24)
  - INSOMNIA [None]
  - RETCHING [None]
  - NEUROPATHY PERIPHERAL [None]
  - DYSPNOEA [None]
  - MUSCLE SPASMS [None]
  - SKIN EXFOLIATION [None]
  - VITREOUS FLOATERS [None]
  - ERECTILE DYSFUNCTION [None]
  - OEDEMA PERIPHERAL [None]
  - DYSARTHRIA [None]
  - CHROMATURIA [None]
  - ECZEMA [None]
  - ONYCHOMYCOSIS [None]
  - DYSURIA [None]
  - CONFUSIONAL STATE [None]
  - URINARY INCONTINENCE [None]
  - ANORECTAL DISORDER [None]
  - BLOOD PRESSURE DECREASED [None]
  - RHINORRHOEA [None]
  - POLLAKIURIA [None]
  - DRY EYE [None]
  - NERVE INJURY [None]
  - HEADACHE [None]
  - DYSPHAGIA [None]
